FAERS Safety Report 8579863-4 (Version None)
Quarter: 2012Q3

REPORT INFORMATION
  Report Type: 
  Country: None (occurrence: None)
  Receive Date: 20120808
  Receipt Date: 20120727
  Transmission Date: 20120928
  Serious: No
  Sender: FDA-Public Use
  Company Number: US-ASTRAZENECA-2012SE53865

PATIENT
  Age: 43 Year
  Sex: Male

DRUGS (3)
  1. ATACAND HCT [Suspect]
     Dosage: 16+12.5 MG DAILY
     Route: 048
  2. ATACAND [Suspect]
     Route: 048
  3. NEXIUM [Concomitant]

REACTIONS (3)
  - GENERAL PHYSICAL HEALTH DETERIORATION [None]
  - HYPERTENSION [None]
  - DRUG DOSE OMISSION [None]
